FAERS Safety Report 17235431 (Version 1)
Quarter: 2020Q1

REPORT INFORMATION
  Report Type: Spontaneous
  Country: TR (occurrence: TR)
  Receive Date: 20200106
  Receipt Date: 20200106
  Transmission Date: 20200409
  Serious: Yes (Other)
  Sender: FDA-Public Use
  Company Number: TR-ROCHE-2357549

PATIENT
  Age: 60 Year
  Sex: Male
  Weight: 73 kg

DRUGS (20)
  1. CYCLOPHOSPHAMIDE. [Suspect]
     Active Substance: CYCLOPHOSPHAMIDE
     Route: 065
     Dates: start: 20190211, end: 20190304
  2. VINCRISTINE [Suspect]
     Active Substance: VINCRISTINE
     Route: 065
     Dates: start: 20190211, end: 20190304
  3. CYMEVENE [GANCICLOVIR] [Concomitant]
     Active Substance: GANCICLOVIR
     Route: 042
  4. DOXORUBICINE [DOXORUBICIN] [Suspect]
     Active Substance: DOXORUBICIN
     Route: 065
     Dates: start: 20190211, end: 20190304
  5. PREDNISONE. [Suspect]
     Active Substance: PREDNISONE
     Indication: B-CELL LYMPHOMA
     Route: 065
     Dates: start: 20190211, end: 20190304
  6. LASIX [Concomitant]
     Active Substance: FUROSEMIDE
  7. DOXORUBICINE [DOXORUBICIN] [Suspect]
     Active Substance: DOXORUBICIN
     Indication: B-CELL LYMPHOMA
     Route: 065
     Dates: start: 20181010, end: 20190102
  8. LIPITOR [Concomitant]
     Active Substance: ATORVASTATIN CALCIUM
     Route: 065
  9. BACTRIM [Concomitant]
     Active Substance: SULFAMETHOXAZOLE\TRIMETHOPRIM
  10. RITUXIMAB. [Suspect]
     Active Substance: RITUXIMAB
     Route: 065
     Dates: start: 20190211, end: 20190304
  11. PREDNISOLONE. [Suspect]
     Active Substance: PREDNISOLONE
     Indication: B-CELL LYMPHOMA
     Route: 065
     Dates: start: 20181010, end: 20190102
  12. DIOVAN [Concomitant]
     Active Substance: VALSARTAN
     Route: 065
  13. ETOPOSIDE. [Suspect]
     Active Substance: ETOPOSIDE
     Indication: B-CELL LYMPHOMA
     Route: 065
     Dates: start: 20190211, end: 20190304
  14. RITUXIMAB. [Suspect]
     Active Substance: RITUXIMAB
     Indication: B-CELL LYMPHOMA
     Dosage: 5 CYCLES
     Route: 065
     Dates: start: 20181010, end: 20190102
  15. URIKOLIZ [Concomitant]
     Active Substance: ALLOPURINOL
  16. CYCLOPHOSPHAMIDE. [Suspect]
     Active Substance: CYCLOPHOSPHAMIDE
     Indication: B-CELL LYMPHOMA
     Route: 065
     Dates: start: 20181010, end: 20190102
  17. CORASPIN [Concomitant]
     Active Substance: ASPIRIN
     Route: 065
  18. DILATREND [Concomitant]
     Active Substance: CARVEDILOL
     Route: 065
  19. FLUZOL [Concomitant]
     Active Substance: FLUCONAZOLE
     Route: 065
  20. VINCRISTINE [Suspect]
     Active Substance: VINCRISTINE
     Indication: B-CELL LYMPHOMA
     Route: 065
     Dates: start: 20181010, end: 20190102

REACTIONS (2)
  - Febrile neutropenia [Unknown]
  - Lymphoma [Unknown]
